FAERS Safety Report 6483888-2 (Version None)
Quarter: 2009Q4

REPORT INFORMATION
  Report Type: 
  Country: None (occurrence: None)
  Receive Date: 20091209
  Receipt Date: 20091021
  Transmission Date: 20100525
  Serious: Yes (Other)
  Sender: FDA-Public Use
  Company Number: CA-ABBOTT-09P-028-0612965-00

PATIENT
  Sex: Male
  Weight: 65.9 kg

DRUGS (2)
  1. MAVIK [Suspect]
     Indication: DRUG USE FOR UNKNOWN INDICATION
  2. MAVIK [Suspect]
     Dosage: INCREASED ON VISIT 3

REACTIONS (1)
  - CARDIAC FAILURE CONGESTIVE [None]
